FAERS Safety Report 6785556-6 (Version None)
Quarter: 2010Q2

REPORT INFORMATION
  Report Type: 
  Country: None (occurrence: None)
  Receive Date: 20100623
  Receipt Date: 20100614
  Transmission Date: 20101027
  Serious: Yes (Other)
  Sender: FDA-Public Use
  Company Number: US-JNJFOC-20100604673

PATIENT
  Sex: Female
  Weight: 72.58 kg

DRUGS (12)
  1. SANDOZ FENTANYL TRANSDERMAL SYSTEM [Suspect]
     Indication: BACK PAIN
     Route: 062
  2. SANDOZ FENTANYL TRANSDERMAL SYSTEM [Suspect]
     Route: 062
  3. SANDOZ FENTANYL TRANSDERMAL SYSTEM [Suspect]
     Route: 062
  4. SANDOZ FENTANYL TRANSDERMAL SYSTEM [Suspect]
     Route: 062
  5. FLEXERIL [Concomitant]
     Indication: MUSCLE SPASMS
     Dosage: EVERY 6-8 HOURS AS NEEDED
     Route: 048
  6. MORPHINE [Concomitant]
     Indication: BACK PAIN
     Route: 048
  7. NORTRIPTYLINE [Concomitant]
     Route: 048
  8. LISINOPRIL [Concomitant]
     Indication: HYPERTENSION
     Route: 048
  9. CLONIDINE [Concomitant]
     Indication: HYPERTENSION
     Route: 048
  10. FELODIPINE [Concomitant]
     Indication: HYPERTENSION
     Route: 048
  11. DICYCLOMINE [Concomitant]
     Indication: GASTROINTESTINAL DISORDER
     Route: 048
  12. VYTORIN [Concomitant]
     Dosage: 10-40MG EVERY DAY
     Route: 048

REACTIONS (4)
  - APPLICATION SITE PAIN [None]
  - CONVULSION [None]
  - DRUG DOSE OMISSION [None]
  - WRONG TECHNIQUE IN DRUG USAGE PROCESS [None]
